FAERS Safety Report 5501086-3 (Version None)
Quarter: 2007Q4

REPORT INFORMATION
  Report Type: 
  Country: None (occurrence: None)
  Receive Date: 20071029
  Receipt Date: 20071017
  Transmission Date: 20080405
  Serious: Yes (Other)
  Sender: FDA-Public Use
  Company Number: FR-PFIZER INC-2007067277

PATIENT
  Sex: Male
  Weight: 97 kg

DRUGS (5)
  1. LYRICA [Suspect]
     Indication: NEURALGIA
     Route: 048
  2. CRESTOR [Concomitant]
  3. DIAMICRON [Concomitant]
  4. DERINOX [Concomitant]
  5. ACETAMINOPHEN [Concomitant]
     Route: 048

REACTIONS (1)
  - HYPOKALAEMIA [None]
